FAERS Safety Report 4428116-4 (Version None)
Quarter: 2004Q3

REPORT INFORMATION
  Report Type: 
  Country: None (occurrence: None)
  Receive Date: 20040726
  Receipt Date: 20040316
  Transmission Date: 20050211
  Serious: No
  Sender: FDA-Public Use
  Company Number: USA030741928

PATIENT
  Age: 63 Year
  Sex: Female
  Weight: 68 kg

DRUGS (20)
  1. FORTEO [Suspect]
     Indication: OSTEOPOROSIS
     Dosage: 20 UG/DAY
     Dates: start: 20030401
  2. CELEBREX [Concomitant]
  3. K-DUR 10 [Concomitant]
  4. AMBIEN [Concomitant]
  5. CODEINE SULFATE [Concomitant]
  6. PREVACID [Concomitant]
  7. FOLIC ACID [Concomitant]
  8. PENTASA [Concomitant]
  9. AMITRIPTYLINE HCL [Concomitant]
  10. LASIX [Concomitant]
  11. PREDNISONE [Concomitant]
  12. QUININE SULFATE [Concomitant]
  13. OXYCODONE HCL [Concomitant]
  14. ASACOL [Concomitant]
  15. MULTI-VITAMIN [Concomitant]
  16. SYNTHROID [Concomitant]
  17. ACTONEL [Concomitant]
  18. PAREGORIC [Concomitant]
  19. LOVENOX [Concomitant]
  20. VITAMIN B12 FOR INJECTION (CYANOCOBALAMIN) [Concomitant]

REACTIONS (2)
  - ARTHROPATHY [None]
  - BLOOD CREATININE INCREASED [None]
